FAERS Safety Report 16099009 (Version 1)
Quarter: 2019Q1

REPORT INFORMATION
  Report Type: Spontaneous
  Country: US (occurrence: US)
  Receive Date: 20190321
  Receipt Date: 20190321
  Transmission Date: 20190418
  Serious: No
  Sender: FDA-Public Use
  Company Number: US-PFIZER INC-2019113751

PATIENT
  Sex: Male

DRUGS (1)
  1. DIFLUCAN [Suspect]
     Active Substance: FLUCONAZOLE
     Dosage: 800 MG, UNK
     Route: 048

REACTIONS (2)
  - Foot deformity [Unknown]
  - Nail disorder [Unknown]
